FAERS Safety Report 14593663 (Version 2)
Quarter: 2018Q1

REPORT INFORMATION
  Report Type: Report from Study
  Country: GB (occurrence: GB)
  Receive Date: 20180302
  Receipt Date: 20180308
  Transmission Date: 20180509
  Serious: Yes (Other)
  Sender: FDA-Public Use
  Company Number: GB-NOVOPROD-587398

PATIENT
  Age: 62 Year
  Sex: Female
  Weight: 64 kg

DRUGS (1)
  1. FIASP [Suspect]
     Active Substance: INSULIN ASPART
     Indication: TYPE 1 DIABETES MELLITUS
     Dosage: UNK
     Route: 040
     Dates: start: 20170801, end: 20180117

REACTIONS (2)
  - Injection site pain [Recovered/Resolved with Sequelae]
  - Catheter site pain [Recovered/Resolved with Sequelae]

NARRATIVE: CASE EVENT DATE: 20170801
